FAERS Safety Report 20049982 (Version 1)
Quarter: 2021Q4

REPORT INFORMATION
  Report Type: Spontaneous
  Country: US (occurrence: US)
  Receive Date: 20211109
  Receipt Date: 20211109
  Transmission Date: 20220303
  Serious: Yes (Death)
  Sender: FDA-Public Use
  Company Number: US-PFIZER INC-2021138568

PATIENT
  Age: 71 Year
  Sex: Female
  Weight: 99.773 kg

DRUGS (24)
  1. VYNDAMAX [Suspect]
     Active Substance: TAFAMIDIS
     Indication: Cardiac amyloidosis
     Dosage: 61 MG, 1X/DAY
     Route: 048
  2. VYNDAMAX [Suspect]
     Active Substance: TAFAMIDIS
     Dosage: 61 MG
  3. VYNDAMAX [Suspect]
     Active Substance: TAFAMIDIS
     Dosage: 61 MG, DAILY
  4. METOPROLOL TARTRATE [Concomitant]
     Active Substance: METOPROLOL TARTRATE
     Dosage: 75 MG, 2X/DAY
  5. TOPROL XL [Concomitant]
     Active Substance: METOPROLOL SUCCINATE
     Dosage: 150 MG, 1X/DAY (1 AND A HALF PILLS OF 100)
     Dates: start: 2020
  6. DEMADEX [Concomitant]
     Active Substance: TORSEMIDE
     Dosage: 120 MG, 1X/DAY
     Dates: start: 20201016
  7. DEMADEX [Concomitant]
     Active Substance: TORSEMIDE
     Dosage: 150 MG, DAILY (1.5 TABLET)
     Route: 048
     Dates: start: 2020
  8. LOPRESSOR [Concomitant]
     Active Substance: METOPROLOL TARTRATE
     Dosage: 50 MG
     Dates: end: 2020
  9. ELIQUIS [Concomitant]
     Active Substance: APIXABAN
     Dosage: 5 MG, 2X/DAY
     Route: 048
     Dates: start: 2020
  10. ECOTRIN [Concomitant]
     Active Substance: ASPIRIN
     Dosage: 81 MG, DAILY
     Route: 048
     Dates: start: 2020
  11. LIPITOR [Concomitant]
     Active Substance: ATORVASTATIN CALCIUM
     Dosage: 80 MG, 1X/DAY (NIGHTLY)
     Route: 048
     Dates: start: 2020
  12. CELEXA [Concomitant]
     Active Substance: CITALOPRAM HYDROBROMIDE
     Dosage: 20 MG, DAILY
     Route: 048
     Dates: start: 2020
  13. FERROUS SULFATE [Concomitant]
     Active Substance: FERROUS SULFATE
     Dosage: 324 MG, 1X/DAY ((TAKE BY MOUTH DAILY WITH BREAKFAST. OTC/(65 MG IRON))
     Route: 048
     Dates: start: 2020
  14. HERBALS\LINSEED OIL [Concomitant]
     Active Substance: HERBALS\LINSEED OIL
     Dosage: 1200 MG, 1X/DAY (MISCELLANEOUS ROUTE EVERY MORNING)
  15. NEURONTIN [Concomitant]
     Active Substance: GABAPENTIN
     Dosage: 200 MG, 3X/DAY
     Dates: start: 2020
  16. NORCO [Concomitant]
     Active Substance: ACETAMINOPHEN\HYDROCODONE BITARTRATE
     Indication: Pain
     Dosage: 1 DF, AS NEEDED (HYDROCODONE: 7.5 MG-ACETAMINOPHEN: 325 MG)/DAILY AMOUNT: 3 TABLETS
     Route: 048
     Dates: start: 2020
  17. SYNTHROID [Concomitant]
     Active Substance: LEVOTHYROXINE SODIUM
     Dosage: 137 UG, 1X/DAY (EVERY MORNING)
     Route: 048
     Dates: start: 2020
  18. MAGNESIUM OXIDE [Concomitant]
     Active Substance: MAGNESIUM OXIDE
     Dosage: 400 MG, DAILY (241.3 MG MAGNESIUM)
     Route: 048
     Dates: start: 2020
  19. PRILOSEC [Concomitant]
     Active Substance: OMEPRAZOLE MAGNESIUM
     Dosage: 20 MG, 1X/DAY (EVERY MORNING ONE TAB BY DAILY)
     Route: 048
     Dates: start: 2020
  20. DELTASONE [Concomitant]
     Active Substance: PREDNISONE
     Dosage: 60 MG, DAILY (ALONG WITH BENADRYL 50 MG AND ZANTAC 150 MG)
     Route: 048
     Dates: start: 2020
  21. BENADRYL [Concomitant]
     Active Substance: DIPHENHYDRAMINE HYDROCHLORIDE
     Dosage: 50 MG (ALONG WITH BENADRYL 50 MG AND ZANTAC 150 MG)
     Dates: start: 2020
  22. ZANTAC [Concomitant]
     Active Substance: RANITIDINE HYDROCHLORIDE
     Dosage: 150 MG (ALONG WITH BENADRYL 50 MG AND ZANTAC 150 MG)
     Dates: start: 2020
  23. KENALOG [Concomitant]
     Active Substance: TRIAMCINOLONE ACETONIDE
     Dosage: UNK, 2X/DAY (APPLY TOPICALLY 2 (TWO) TIMES A DAY)
     Route: 061
  24. BASAGLAR [Concomitant]
     Active Substance: INSULIN GLARGINE
     Dosage: 15 IU, 1X/DAY (INJECT 15 UNITS UNDER THE SKIN EVERY MORNING)
     Route: 058
     Dates: start: 2020

REACTIONS (1)
  - Death [Fatal]
